FAERS Safety Report 4517826-6 (Version None)
Quarter: 2004Q4

REPORT INFORMATION
  Report Type: 
  Country: None (occurrence: None)
  Receive Date: 20041203
  Receipt Date: 20031218
  Transmission Date: 20050328
  Serious: Yes (Hospitalization, Disabling)
  Sender: FDA-Public Use
  Company Number: US-MERCK-0312USA02102

PATIENT
  Age: 48 Year
  Sex: Male
  Weight: 132 kg

DRUGS (10)
  1. VIOXX [Suspect]
     Indication: MONARTHRITIS
     Route: 048
     Dates: start: 20010627, end: 20030120
  2. SYNTHROID [Concomitant]
     Route: 065
     Dates: start: 20010501, end: 20030121
  3. SPIRONOLACTONE [Concomitant]
     Route: 065
     Dates: end: 20030121
  4. HYDROCODONE HYDROCHLORIDE [Concomitant]
     Route: 065
  5. IBUPROFEN [Concomitant]
     Route: 065
     Dates: start: 20000101
  6. CELEBREX [Concomitant]
     Route: 065
     Dates: start: 20010401, end: 20010601
  7. DEMADEX [Concomitant]
     Indication: OEDEMA PERIPHERAL
     Route: 065
     Dates: start: 20010516, end: 20030120
  8. LASIX [Concomitant]
     Indication: OEDEMA PERIPHERAL
     Route: 065
     Dates: start: 20010516, end: 20030120
  9. LOZOL [Concomitant]
     Indication: OEDEMA PERIPHERAL
     Route: 065
     Dates: start: 20010516, end: 20030120
  10. CHONDROITIN SULFATE SODIUM AND GLUCOSAMINE HYDROCHLORIDE [Concomitant]
     Route: 065

REACTIONS (15)
  - ASTHENIA [None]
  - COAGULOPATHY [None]
  - COUGH [None]
  - DEHYDRATION [None]
  - DEPRESSION [None]
  - EMOTIONAL DISTRESS [None]
  - GALLBLADDER ENLARGEMENT [None]
  - HAEMORRHAGIC STROKE [None]
  - HEMIANOPIA HOMONYMOUS [None]
  - HEPATITIS C [None]
  - HEPATOMEGALY [None]
  - NASAL CONGESTION [None]
  - SPLENOMEGALY [None]
  - THROMBOCYTOPENIA [None]
  - VISUAL FIELD DEFECT [None]
